FAERS Safety Report 5951469-2 (Version None)
Quarter: 2008Q4

REPORT INFORMATION
  Report Type: 
  Country: None (occurrence: None)
  Receive Date: 20081022
  Receipt Date: 20080728
  Transmission Date: 20090506
  Serious: No
  Sender: FDA-Public Use
  Company Number: ALL1-2008-02142

PATIENT
  Age: 7 Year
  Sex: Male

DRUGS (1)
  1. VYVANSE [Suspect]
     Dosage: 20 MG, 1X/DAY:QD, ORAL
     Route: 048
     Dates: start: 20080727

REACTIONS (3)
  - CRYING [None]
  - LOGORRHOEA [None]
  - REPETITIVE SPEECH [None]
